FAERS Safety Report 9724651 (Version 1)
Quarter: 2013Q4

REPORT INFORMATION
  Report Type: Spontaneous
  Country: US (occurrence: US)
  Receive Date: 20131202
  Receipt Date: 20131202
  Transmission Date: 20140711
  Serious: Yes (Other)
  Sender: FDA-Public Use
  Company Number: US-TEVA-447620USA

PATIENT
  Sex: Female
  Weight: 51.3 kg

DRUGS (1)
  1. PARAGARD 380A [Suspect]
     Indication: CONTRACEPTION

REACTIONS (2)
  - Device breakage [Unknown]
  - Medical device complication [Unknown]
